FAERS Safety Report 5606310-4 (Version None)
Quarter: 2008Q1

REPORT INFORMATION
  Report Type: 
  Country: None (occurrence: None)
  Receive Date: 20080129
  Receipt Date: 20070524
  Transmission Date: 20080703
  Serious: No
  Sender: FDA-Public Use
  Company Number: A0652912A

PATIENT

DRUGS (2)
  1. WELLBUTRIN [Suspect]
     Indication: DRUG USE FOR UNKNOWN INDICATION
     Route: 048
  2. ADDERALL 10 [Suspect]
     Indication: DRUG INTERACTION

REACTIONS (2)
  - AGITATION [None]
  - DRUG INTERACTION [None]
